FAERS Safety Report 8011197-9 (Version None)
Quarter: 2011Q4

REPORT INFORMATION
  Report Type: 
  Country: None (occurrence: None)
  Receive Date: 20111228
  Receipt Date: 20111219
  Transmission Date: 20120403
  Serious: Yes (Other)
  Sender: FDA-Public Use
  Company Number: US-CELGENEUS-163-21880-11122375

PATIENT
  Sex: Male

DRUGS (20)
  1. REVLIMID [Suspect]
     Indication: MULTIPLE MYELOMA
     Dosage: 10 MILLIGRAM
     Route: 048
     Dates: start: 20111214
  2. VALACYCLOVIR [Concomitant]
     Route: 065
  3. GLIPIZIDE [Concomitant]
     Route: 065
  4. ASPIRIN [Concomitant]
     Route: 065
  5. CARVEDILOL [Concomitant]
     Route: 065
  6. LISINOPRIL [Concomitant]
     Route: 065
  7. CYMBALTA [Concomitant]
     Route: 065
  8. CLOPIDOGREL [Concomitant]
     Route: 065
  9. FOLIC ACID [Concomitant]
     Route: 065
  10. PREVACID [Concomitant]
     Route: 065
  11. NOVOLIN 70/30 [Concomitant]
     Route: 065
  12. DEXAMETHASONE [Concomitant]
     Route: 065
  13. CALCIUM ACETATE [Concomitant]
     Route: 065
  14. CENTRUM [Concomitant]
     Route: 065
  15. METFORMIN HCL [Concomitant]
     Route: 065
  16. ERGOCALCIFER [Concomitant]
     Route: 065
  17. LASIX [Concomitant]
     Route: 065
  18. OSCAL [Concomitant]
     Route: 065
  19. TAMSULOSIN HCL [Concomitant]
     Route: 065
  20. MIRTAZAPINE [Concomitant]
     Route: 065

REACTIONS (3)
  - HAEMORRHAGE [None]
  - CONTUSION [None]
  - DRUG DOSE OMISSION [None]
